FAERS Safety Report 9309493 (Version 1)
Quarter: 2013Q2

REPORT INFORMATION
  Report Type: Spontaneous
  Country: US (occurrence: US)
  Receive Date: 20130525
  Receipt Date: 20130525
  Transmission Date: 20140414
  Serious: No
  Sender: FDA-Public Use
  Company Number: US-BRISTOL-MYERS SQUIBB COMPANY-18723932

PATIENT
  Age: 48 Year
  Sex: Female

DRUGS (5)
  1. BYDUREON [Suspect]
     Indication: TYPE 2 DIABETES MELLITUS
     Dosage: ONGOING
     Route: 058
  2. JANUMET [Concomitant]
     Dosage: 2DF,QD
     Route: 048
  3. PRANDIN [Concomitant]
     Indication: TYPE 2 DIABETES MELLITUS
     Route: 048
  4. CODEINE [Concomitant]
  5. BENZONATATE [Concomitant]

REACTIONS (4)
  - Injection site nodule [Recovering/Resolving]
  - Injection site erythema [Recovering/Resolving]
  - Injection site pruritus [Recovering/Resolving]
  - Injection site pain [Recovering/Resolving]
